FAERS Safety Report 18647020 (Version 1)
Quarter: 2020Q4

REPORT INFORMATION
  Report Type: Report from Study
  Country: None (occurrence: US)
  Receive Date: 20201221
  Receipt Date: 20201221
  Transmission Date: 20210114
  Serious: Yes (Other)
  Sender: FDA-Public Use
  Company Number: US-ABBVIE-20K-163-3584081-00

PATIENT
  Age: 68 Year
  Sex: Female
  Weight: 61.74 kg

DRUGS (6)
  1. LEVOTHYROXINE. [Concomitant]
     Active Substance: LEVOTHYROXINE
     Indication: THYROID DISORDER
  2. HUMIRA [Suspect]
     Active Substance: ADALIMUMAB
     Indication: CROHN^S DISEASE
     Dosage: CITRATE FREE
     Route: 058
     Dates: start: 2009, end: 2011
  3. CALCIUM [Concomitant]
     Active Substance: CALCIUM
     Indication: PRODUCT USED FOR UNKNOWN INDICATION
  4. HUMIRA [Suspect]
     Active Substance: ADALIMUMAB
     Dosage: CITRATE FREE
     Route: 058
     Dates: start: 2011
  5. MONTELUKAST [Concomitant]
     Active Substance: MONTELUKAST SODIUM
     Indication: SEASONAL ALLERGY
  6. OMEPRAZOLE. [Concomitant]
     Active Substance: OMEPRAZOLE
     Indication: DYSPEPSIA

REACTIONS (8)
  - Hidradenitis [Not Recovered/Not Resolved]
  - Rectal abscess [Recovered/Resolved]
  - Atrial fibrillation [Not Recovered/Not Resolved]
  - Female genital tract fistula [Recovering/Resolving]
  - Acrochordon [Not Recovered/Not Resolved]
  - Fungal infection [Recovered/Resolved]
  - Injection site pain [Recovered/Resolved]
  - Vulval eczema [Not Recovered/Not Resolved]

NARRATIVE: CASE EVENT DATE: 2011
